FAERS Safety Report 13902744 (Version 3)
Quarter: 2017Q3

REPORT INFORMATION
  Report Type: Spontaneous
  Country: US (occurrence: US)
  Receive Date: 20170824
  Receipt Date: 20170910
  Transmission Date: 20171127
  Serious: Yes (Other)
  Sender: FDA-Public Use
  Company Number: US-009507513-1708USA009778

PATIENT
  Age: 29 Year
  Sex: Male

DRUGS (3)
  1. PROVENTIL [Suspect]
     Active Substance: ALBUTEROL
     Indication: ASTHMA
     Dosage: RECEIVED BACK-TO-BACK ALBUTEROL INHALERSUNK
     Route: 055
  2. PROVENTIL [Suspect]
     Active Substance: ALBUTEROL
     Dosage: AS NEEDED
     Route: 055
  3. PROVENTIL [Suspect]
     Active Substance: ALBUTEROL
     Dosage: INCREASED USE OF INHALERS
     Route: 055

REACTIONS (2)
  - Lactic acidosis [Recovered/Resolved]
  - Drug ineffective [Unknown]
